FAERS Safety Report 9351354 (Version 2)
Quarter: 2014Q1

REPORT INFORMATION
  Report Type: Spontaneous
  Country: US (occurrence: US)
  Receive Date: 20130617
  Receipt Date: 20140109
  Transmission Date: 20141002
  Serious: No
  Sender: FDA-Public Use
  Company Number: US-B.I. PHARMACEUTICALS,INC./RIDGEFIELD-2013-BI-16483BP

PATIENT
  Age: 74 Year
  Sex: Male
  Weight: 78 kg

DRUGS (3)
  1. PRADAXA [Suspect]
     Indication: ATRIAL FIBRILLATION
     Dosage: 300 MG
     Route: 048
     Dates: start: 201102
  2. DILTIAZEM [Concomitant]
     Indication: HEART RATE
     Dosage: 180 MG
     Route: 048
     Dates: start: 2011
  3. DILTIAZEM XR [Concomitant]
     Indication: ATRIAL FIBRILLATION
     Dosage: 180 MG
     Route: 048

REACTIONS (4)
  - Pulmonary congestion [Not Recovered/Not Resolved]
  - Urinary tract infection [Recovered/Resolved]
  - Urinary tract infection [Recovered/Resolved]
  - Polyp [Not Recovered/Not Resolved]
